FAERS Safety Report 5472511-1 (Version None)
Quarter: 2007Q3

REPORT INFORMATION
  Report Type: 
  Country: None (occurrence: None)
  Receive Date: 20070927
  Receipt Date: 20070918
  Transmission Date: 20080115
  Serious: Yes (Death, Congenital Anomaly)
  Sender: FDA-Public Use
  Company Number: 020-20785-07091104

PATIENT

DRUGS (1)
  1. THALIDOMIDE [Suspect]
     Indication: DRUG USE FOR UNKNOWN INDICATION
     Dosage: INTRA-UTERINE

REACTIONS (7)
  - CONGENITAL ANOMALY [None]
  - CONGENITAL HAND MALFORMATION [None]
  - DRUG EXPOSURE DURING PREGNANCY [None]
  - PULMONARY HYPOPLASIA [None]
  - SELF-MEDICATION [None]
  - UNWANTED PREGNANCY [None]
  - URINARY TRACT DISORDER [None]
